FAERS Safety Report 22942839 (Version 2)
Quarter: 2023Q4

REPORT INFORMATION
  Report Type: Spontaneous
  Country: US (occurrence: US)
  Receive Date: 20230914
  Receipt Date: 20231018
  Transmission Date: 20240109
  Serious: Yes (Death, Other)
  Sender: FDA-Public Use
  Company Number: US-AMGEN-USASP2023160081

PATIENT
  Age: 79 Year
  Sex: Female

DRUGS (1)
  1. TAVNEOS [Suspect]
     Active Substance: AVACOPAN
     Indication: Anti-neutrophil cytoplasmic antibody positive vasculitis
     Dosage: 30 MILLIGRAM, BID (TAKE 3 CAPSULES BY MOUTH TWICE DAILY WITH FOOD)
     Route: 048

REACTIONS (4)
  - Death [Fatal]
  - Colon operation [Unknown]
  - Sepsis [Unknown]
  - Vomiting [Unknown]

NARRATIVE: CASE EVENT DATE: 20231009
